FAERS Safety Report 6108574-X (Version None)
Quarter: 2009Q1

REPORT INFORMATION
  Report Type: 
  Country: None (occurrence: None)
  Receive Date: 20090303
  Receipt Date: 20090216
  Transmission Date: 20090719
  Serious: Yes (Other)
  Sender: FDA-Public Use
  Company Number: 2009S1002860

PATIENT
  Age: 3 Year
  Sex: Female

DRUGS (1)
  1. VALPROIC ACID [Suspect]
     Indication: MOSAICISM
     Dosage: ; ORAL
     Route: 048

REACTIONS (3)
  - ENCEPHALOPATHY [None]
  - LIVER DISORDER [None]
  - PLATELET DISORDER [None]
